FAERS Safety Report 6175112-5 (Version None)
Quarter: 2009Q2

REPORT INFORMATION
  Report Type: 
  Country: None (occurrence: None)
  Receive Date: 20090430
  Receipt Date: 20081222
  Transmission Date: 20091009
  Serious: No
  Sender: FDA-Public Use
  Company Number: US-ASTRAZENECA-2008UW28483

PATIENT
  Age: 59 Year
  Sex: Female
  Weight: 67.1 kg

DRUGS (2)
  1. NEXIUM [Suspect]
     Indication: GASTROOESOPHAGEAL REFLUX DISEASE
     Route: 048
     Dates: start: 20080401, end: 20081220
  2. HRT [Concomitant]
     Dates: start: 19980101

REACTIONS (11)
  - ANXIETY [None]
  - CHEST DISCOMFORT [None]
  - DIZZINESS [None]
  - DYSPEPSIA [None]
  - FEELING COLD [None]
  - FEELING HOT [None]
  - FLATULENCE [None]
  - SINUSITIS [None]
  - VERTIGO [None]
  - WEIGHT DECREASED [None]
  - WEIGHT INCREASED [None]
